FAERS Safety Report 14979649 (Version 15)
Quarter: 2019Q4

REPORT INFORMATION
  Report Type: Spontaneous
  Country: CA (occurrence: CA)
  Receive Date: 20180606
  Receipt Date: 20191209
  Transmission Date: 20200122
  Serious: Yes (Other)
  Sender: FDA-Public Use
  Company Number: CA-CELLTRION INC.-2017CA013252

PATIENT

DRUGS (27)
  1. INFLECTRA [Suspect]
     Active Substance: INFLIXIMAB-DYYB
     Indication: COLITIS ULCERATIVE
     Dosage: 940 MG (5 MG/KG), EVERY (Q) Q 0, 2, 6 WEEKS, THEN EVERY 8 WEEKS
     Route: 042
     Dates: start: 20170712, end: 20170712
  2. INFLECTRA [Suspect]
     Active Substance: INFLIXIMAB-DYYB
     Dosage: 10 MG/KG (EVERY4 WEEKS)
     Route: 042
     Dates: start: 20180814, end: 20180814
  3. INFLECTRA [Suspect]
     Active Substance: INFLIXIMAB-DYYB
     Dosage: 10 MG/KG (EVERY6 WEEKS)
     Route: 042
     Dates: start: 20190107
  4. INFLECTRA [Suspect]
     Active Substance: INFLIXIMAB-DYYB
     Dosage: 10 MG/KG (EVERY6 WEEKS)
     Route: 042
     Dates: start: 20190204
  5. VSL 3 [Concomitant]
     Active Substance: PROBIOTICS NOS
     Dosage: UNK
     Dates: start: 2015, end: 2017
  6. INFLECTRA [Suspect]
     Active Substance: INFLIXIMAB-DYYB
     Dosage: 10 MG/KG, (EVERY6 WEEKS)
     Route: 042
     Dates: start: 20180710, end: 20180710
  7. AZATHIOPRINE. [Concomitant]
     Active Substance: AZATHIOPRINE
     Dosage: UNK
     Route: 065
     Dates: start: 2014
  8. DEXILANT [Concomitant]
     Active Substance: DEXLANSOPRAZOLE
     Dosage: UNK
     Route: 065
  9. DOMPERIDONE [Concomitant]
     Active Substance: DOMPERIDONE
     Dosage: UNK
     Route: 065
  10. INFLECTRA [Suspect]
     Active Substance: INFLIXIMAB-DYYB
     Dosage: 10 MG/KG (EVERY6 WEEKS)
     Route: 042
     Dates: start: 20180918
  11. INFLECTRA [Suspect]
     Active Substance: INFLIXIMAB-DYYB
     Dosage: 10 MG/KG, (EVERY6 WEEKS)
     Route: 042
     Dates: start: 20180529, end: 20180710
  12. INFLECTRA [Suspect]
     Active Substance: INFLIXIMAB-DYYB
     Dosage: 10 MG/KG (EVERY6 WEEKS)
     Route: 042
     Dates: start: 20180918
  13. INFLECTRA [Suspect]
     Active Substance: INFLIXIMAB-DYYB
     Dosage: 10 MG/KG (EVERY6 WEEKS)
     Route: 042
     Dates: start: 20181112
  14. INFLECTRA [Suspect]
     Active Substance: INFLIXIMAB-DYYB
     Dosage: 10 MG/KG (EVERY6 WEEKS)
     Route: 042
     Dates: start: 20181210
  15. INFLECTRA [Suspect]
     Active Substance: INFLIXIMAB-DYYB
     Dosage: 10 MG/KG (EVERY6 WEEKS)
     Route: 042
     Dates: start: 20190401
  16. BACTRIM [Concomitant]
     Active Substance: SULFAMETHOXAZOLE\TRIMETHOPRIM
     Dosage: UNK
  17. INFLECTRA [Suspect]
     Active Substance: INFLIXIMAB-DYYB
     Dosage: 10 MG/KG (EVERY 6 WEEKS)
     Route: 042
     Dates: start: 20180821, end: 20180821
  18. INFLECTRA [Suspect]
     Active Substance: INFLIXIMAB-DYYB
     Dosage: 10 MG/KG (EVERY6 WEEKS)
     Route: 042
     Dates: start: 20180918
  19. INFLECTRA [Suspect]
     Active Substance: INFLIXIMAB-DYYB
     Dosage: 10 MG/KG (EVERY6 WEEKS)
     Route: 042
     Dates: start: 20191015
  20. INFLECTRA [Suspect]
     Active Substance: INFLIXIMAB-DYYB
     Dosage: 5 MG/KG Q 6 WEEKS, THEN EVERY 8 WEEKS
     Route: 042
     Dates: start: 20170822, end: 20180405
  21. INFLECTRA [Suspect]
     Active Substance: INFLIXIMAB-DYYB
     Dosage: 470 MG, (EVERY 2 WEEKS)
     Route: 042
     Dates: start: 20180405, end: 20180405
  22. INFLECTRA [Suspect]
     Active Substance: INFLIXIMAB-DYYB
     Dosage: 10 MG/KG (EVERY6 WEEKS)
     Route: 042
     Dates: start: 20191015
  23. INFLECTRA [Suspect]
     Active Substance: INFLIXIMAB-DYYB
     Dosage: UNK
     Dates: start: 20191126
  24. INFLECTRA [Suspect]
     Active Substance: INFLIXIMAB-DYYB
     Dosage: 10 MG/KG FOR ONE DOSE (WEEK2)
     Route: 042
     Dates: start: 20170727, end: 20170727
  25. INFLECTRA [Suspect]
     Active Substance: INFLIXIMAB-DYYB
     Dosage: 470 MG, (EVERY 2 WEEKS)
     Route: 042
     Dates: start: 20180216, end: 20180216
  26. INFLECTRA [Suspect]
     Active Substance: INFLIXIMAB-DYYB
     Dosage: 10 MG/KG (EVERY6 WEEKS)
     Route: 042
     Dates: start: 20190513
  27. INFLECTRA [Suspect]
     Active Substance: INFLIXIMAB-DYYB
     Dosage: 10 MG/KG (EVERY6 WEEKS)
     Route: 042
     Dates: start: 20190816

REACTIONS (5)
  - Condition aggravated [Recovering/Resolving]
  - Inappropriate schedule of product administration [Unknown]
  - Off label use [Unknown]
  - Intentional product use issue [Unknown]
  - Blood pressure fluctuation [Unknown]

NARRATIVE: CASE EVENT DATE: 20180216
